FAERS Safety Report 5241929-4 (Version None)
Quarter: 2007Q1

REPORT INFORMATION
  Report Type: 
  Country: None (occurrence: None)
  Receive Date: 20070212
  Receipt Date: 20070212
  Transmission Date: 20070707
  Serious: Yes (Hospitalization)
  Sender: FDA-Public Use
  Company Number: None

PATIENT
  Age: 43 Year
  Sex: Male

DRUGS (1)
  1. BACTRIM 800/100 [Suspect]
     Indication: FURUNCLE
     Dosage: 1 BID PO
     Route: 048
     Dates: start: 20061114, end: 20061117

REACTIONS (9)
  - CHILLS [None]
  - EYE SWELLING [None]
  - HYPERHIDROSIS [None]
  - LOCAL SWELLING [None]
  - NASOPHARYNGEAL DISORDER [None]
  - PAIN [None]
  - PRURITUS [None]
  - PYREXIA [None]
  - SWELLING FACE [None]
